FAERS Safety Report 8333598-1 (Version None)
Quarter: 2012Q2

REPORT INFORMATION
  Report Type: 
  Country: None (occurrence: None)
  Receive Date: 20120503
  Receipt Date: 20120427
  Transmission Date: 20120825
  Serious: Yes (Other)
  Sender: FDA-Public Use
  Company Number: GXKR2012DE001591

PATIENT

DRUGS (1)
  1. PAMIDRONATE DISODIUM [Suspect]
     Dosage: DAILY DOSE: 60 MG MILLIGRAM(S) EVERY 8 WEEK
     Route: 042
     Dates: start: 20020101

REACTIONS (1)
  - FOOT FRACTURE [None]
